FAERS Safety Report 20717473 (Version 1)
Quarter: 2022Q2

REPORT INFORMATION
  Report Type: Spontaneous
  Country: SE (occurrence: SE)
  Receive Date: 20220417
  Receipt Date: 20220417
  Transmission Date: 20220721
  Serious: Yes (Other)
  Sender: FDA-Public Use
  Company Number: None

PATIENT
  Age: 19 Year
  Sex: Male

DRUGS (5)
  1. DIAZEPAM [Suspect]
     Active Substance: DIAZEPAM
     Indication: Aggression
     Dates: start: 20210311
  2. DIAZEPAM [Suspect]
     Active Substance: DIAZEPAM
     Indication: Agitation
  3. HALDOL [Suspect]
     Active Substance: HALOPERIDOL
     Indication: Agitation
     Dates: start: 20210311
  4. ZUCLOPENTHIXOL [Suspect]
     Active Substance: ZUCLOPENTHIXOL
     Indication: Aggression
     Route: 065
  5. ZUCLOPENTHIXOL [Suspect]
     Active Substance: ZUCLOPENTHIXOL
     Indication: Agitation

REACTIONS (1)
  - Dystonia [Recovering/Resolving]

NARRATIVE: CASE EVENT DATE: 20210311
